FAERS Safety Report 6569649-4 (Version None)
Quarter: 2010Q1

REPORT INFORMATION
  Report Type: 
  Country: None (occurrence: None)
  Receive Date: 20100125
  Receipt Date: 20090911
  Transmission Date: 20100710
  Serious: Yes (Hospitalization)
  Sender: FDA-Public Use
  Company Number: 2008BI023186

PATIENT
  Sex: Female
  Weight: 86.1834 kg

DRUGS (6)
  1. TYSABRI [Suspect]
     Indication: CROHN'S DISEASE
     Dosage: 300 MG;QM;IV
     Route: 042
     Dates: start: 20080707, end: 20081002
  2. BENADRYL [Concomitant]
  3. SOLU-MEDROL [Concomitant]
  4. CIPRO [Concomitant]
  5. ALBUTEROL [Concomitant]
  6. PREV MEDS [Concomitant]

REACTIONS (9)
  - BLOOD MAGNESIUM DECREASED [None]
  - BLOOD POTASSIUM DECREASED [None]
  - CROHN'S DISEASE [None]
  - DYSPNOEA [None]
  - MALAISE [None]
  - NAUSEA [None]
  - PRURITUS [None]
  - RASH [None]
  - URTICARIA [None]
